FAERS Safety Report 13050391 (Version 1)
Quarter: 2016Q4

REPORT INFORMATION
  Report Type: Spontaneous
  Country: US (occurrence: US)
  Receive Date: 20161221
  Receipt Date: 20161221
  Transmission Date: 20170207
  Serious: No
  Sender: FDA-Public Use
  Company Number: US-NOVOPROD-498400

PATIENT
  Age: 69 Year
  Sex: Female

DRUGS (8)
  1. LEVEMIR [Suspect]
     Active Substance: INSULIN DETEMIR
     Dosage: UNK
     Route: 058
     Dates: start: 2015
  2. LEVEMIR [Suspect]
     Active Substance: INSULIN DETEMIR
     Indication: TYPE 1 DIABETES MELLITUS
     Dosage: UNK
     Route: 058
     Dates: start: 2015
  3. LEVEMIR [Suspect]
     Active Substance: INSULIN DETEMIR
     Dosage: UNK
     Route: 058
     Dates: start: 2015
  4. LEVEMIR [Suspect]
     Active Substance: INSULIN DETEMIR
     Dosage: UNK
     Route: 058
     Dates: start: 2015
  5. LEVEMIR [Suspect]
     Active Substance: INSULIN DETEMIR
     Dosage: UNK
     Route: 058
     Dates: start: 2015
  6. LEVEMIR [Suspect]
     Active Substance: INSULIN DETEMIR
     Dosage: UNK
     Route: 058
     Dates: start: 2015
  7. HUMALOG [Concomitant]
     Active Substance: INSULIN LISPRO
     Indication: TYPE 1 DIABETES MELLITUS
     Route: 058
  8. LEVEMIR [Suspect]
     Active Substance: INSULIN DETEMIR
     Dosage: UNK
     Route: 058
     Dates: start: 2015

REACTIONS (3)
  - Fatigue [Recovered/Resolved]
  - Dizziness [Recovered/Resolved]
  - Blood glucose increased [Recovered/Resolved]

NARRATIVE: CASE EVENT DATE: 2015
